FAERS Safety Report 9126035 (Version 2)
Quarter: 2013Q2

REPORT INFORMATION
  Report Type: Spontaneous
  Country: US (occurrence: US)
  Receive Date: 20130121
  Receipt Date: 20130401
  Transmission Date: 20140414
  Serious: Yes (Hospitalization)
  Sender: FDA-Public Use
  Company Number: US-BAYER-2013-005603

PATIENT
  Age: 47 Year
  Sex: Female

DRUGS (5)
  1. YAZ [Suspect]
  2. YASMIN [Suspect]
  3. ATENOLOL [Concomitant]
     Dosage: 50 MG, UNK
  4. PANADOL [Concomitant]
  5. CODEINE [Concomitant]

REACTIONS (3)
  - Pulmonary embolism [None]
  - Deep vein thrombosis [None]
  - Pelvic venous thrombosis [None]
